FAERS Safety Report 17593339 (Version 3)
Quarter: 2023Q2

REPORT INFORMATION
  Report Type: Report from Study
  Country: AU (occurrence: AU)
  Receive Date: 20200327
  Receipt Date: 20230616
  Transmission Date: 20230721
  Serious: Yes (Other)
  Sender: FDA-Public Use
  Company Number: AU-JNJFOC-20190535866

PATIENT
  Sex: Female

DRUGS (1)
  1. PRUCALOPRIDE [Suspect]
     Active Substance: PRUCALOPRIDE
     Indication: Intestinal pseudo-obstruction
     Dosage: 3 MILLIGRAM, QD
     Route: 065

REACTIONS (3)
  - Gastrointestinal ischaemia [Unknown]
  - Off label use [Unknown]
  - Product use in unapproved indication [Unknown]
